FAERS Safety Report 8471203-4 (Version None)
Quarter: 2012Q2

REPORT INFORMATION
  Report Type: 
  Country: None (occurrence: None)
  Receive Date: 20120627
  Receipt Date: 20120615
  Transmission Date: 20120825
  Serious: Yes (Other)
  Sender: FDA-Public Use
  Company Number: GB-PFIZER INC-2005113353

PATIENT
  Age: 33 Year
  Sex: Female

DRUGS (1)
  1. NICOTINE [Suspect]
     Dosage: UNK
     Route: 055

REACTIONS (15)
  - DYSPNOEA [None]
  - HEART RATE INCREASED [None]
  - HEADACHE [None]
  - MIGRAINE [None]
  - HEPATIC PAIN [None]
  - PAIN [None]
  - PAIN IN EXTREMITY [None]
  - ARRHYTHMIA [None]
  - GASTROINTESTINAL PAIN [None]
  - ACCIDENTAL EXPOSURE [None]
  - ASTHMA [None]
  - HYPERSENSITIVITY [None]
  - EYE PAIN [None]
  - CHEST PAIN [None]
  - RENAL PAIN [None]
